FAERS Safety Report 20450878 (Version 1)
Quarter: 2022Q1

REPORT INFORMATION
  Report Type: Spontaneous
  Country: US (occurrence: None)
  Receive Date: 20220209
  Receipt Date: 20220209
  Transmission Date: 20220424
  Serious: Yes (Death)
  Sender: FDA-Public Use
  Company Number: None

PATIENT
  Age: 74 Year
  Sex: Male

DRUGS (2)
  1. DESCOVY [Suspect]
     Active Substance: EMTRICITABINE\TENOFOVIR ALAFENAMIDE FUMARATE
     Indication: HIV infection
     Dosage: OTHER QUANTITY : 200-25 MG;?FREQUENCY : DAILY;?
     Route: 048
     Dates: start: 2020, end: 20211014
  2. NEVIRAPINE [Concomitant]
     Active Substance: NEVIRAPINE

REACTIONS (1)
  - Death [None]

NARRATIVE: CASE EVENT DATE: 20211201
